FAERS Safety Report 9494547 (Version 1)
Quarter: 2013Q3

REPORT INFORMATION
  Report Type: Spontaneous
  Country: US (occurrence: None)
  Receive Date: 20130830
  Receipt Date: 20130830
  Transmission Date: 20140515
  Serious: Yes (Disabling, Other)
  Sender: FDA-Public Use
  Company Number: None

PATIENT
  Age: 72 Year
  Sex: Male
  Weight: 95.26 kg

DRUGS (3)
  1. AMOXICILLIN [Suspect]
     Indication: HELICOBACTER INFECTION
     Dosage: 2 PILLS TWICE DAILY BY MOUTH
     Route: 048
     Dates: start: 20130705, end: 20130719
  2. CLARITHROMYCIN [Suspect]
     Dosage: 1 PILL TWICE DAILY BY MOUTH
     Route: 048
  3. OMEPRAZOLE [Suspect]
     Route: 048

REACTIONS (2)
  - Parosmia [None]
  - Dysgeusia [None]
